FAERS Safety Report 10533504 (Version 1)
Quarter: 2014Q4

REPORT INFORMATION
  Report Type: Spontaneous
  Country: US (occurrence: None)
  Receive Date: 20141021
  Receipt Date: 20141021
  Transmission Date: 20150529
  Serious: Yes (Life-Threatening)
  Sender: FDA-Public Use
  Company Number: None

PATIENT
  Age: 53 Year
  Sex: Male
  Weight: 77 kg

DRUGS (3)
  1. KEFZOL [Suspect]
     Active Substance: CEFAZOLIN SODIUM
     Indication: INTRAOPERATIVE CARE
     Dates: start: 20141010
  2. PROPOFOL. [Suspect]
     Active Substance: PROPOFOL
  3. KETAMINE [Suspect]
     Active Substance: KETAMINE

REACTIONS (1)
  - Anaphylactic reaction [None]

NARRATIVE: CASE EVENT DATE: 20141010
